FAERS Safety Report 5068261-6 (Version None)
Quarter: 2006Q3

REPORT INFORMATION
  Report Type: 
  Country: None (occurrence: None)
  Receive Date: 20060728
  Receipt Date: 20060710
  Transmission Date: 20061208
  Serious: Yes (Hospitalization, Other)
  Sender: FDA-Public Use
  Company Number: US_030493792

PATIENT
  Age: 33 Year
  Sex: Female

DRUGS (2)
  1. OLANZAPINE [Suspect]
     Indication: MENTAL DISORDER
     Dosage: 20 MG DAILY (1/D), ORAL
     Route: 048
  2. FLUFENAZIN (FLUPHENAZINE HYDROCHLORIDE) [Concomitant]

REACTIONS (8)
  - COMA [None]
  - DRUG INTERACTION [None]
  - EPILEPSY [None]
  - GRAND MAL CONVULSION [None]
  - NEUROLEPTIC MALIGNANT SYNDROME [None]
  - RENAL FAILURE [None]
  - RHABDOMYOLYSIS [None]
  - TACHYCARDIA [None]
